FAERS Safety Report 6746249-4 (Version None)
Quarter: 2010Q2

REPORT INFORMATION
  Report Type: 
  Country: None (occurrence: None)
  Receive Date: 20100528
  Receipt Date: 20091209
  Transmission Date: 20101027
  Serious: No
  Sender: FDA-Public Use
  Company Number: US-ASTRAZENECA-2009SE31037

PATIENT
  Age: 71 Year
  Sex: Female

DRUGS (1)
  1. OMEPRAZOLE [Suspect]
     Route: 048

REACTIONS (4)
  - ABDOMINAL DISCOMFORT [None]
  - DYSURIA [None]
  - HAEMATOCHEZIA [None]
  - VOMITING [None]
